FAERS Safety Report 10645948 (Version 2)
Quarter: 2014Q4

REPORT INFORMATION
  Report Type: Spontaneous
  Country: TW (occurrence: TW)
  Receive Date: 20141211
  Receipt Date: 20141211
  Transmission Date: 20150529
  Serious: Yes (Hospitalization)
  Sender: FDA-Public Use
  Company Number: PHHY2014TW154423

PATIENT
  Age: 66 Year
  Sex: Female

DRUGS (1)
  1. GLIVEC [Suspect]
     Active Substance: IMATINIB MESYLATE
     Indication: GASTROINTESTINAL STROMAL TUMOUR
     Dosage: UNK
     Route: 065
     Dates: start: 201407, end: 201410

REACTIONS (6)
  - Fungaemia [Recovered/Resolved]
  - Skin lesion [Recovered/Resolved]
  - Hepatotoxicity [Recovering/Resolving]
  - Sepsis [Recovered/Resolved]
  - Rash [Recovered/Resolved]
  - Hepatic failure [Recovered/Resolved]

NARRATIVE: CASE EVENT DATE: 201410
